FAERS Safety Report 4743209-X (Version None)
Quarter: 2005Q3

REPORT INFORMATION
  Report Type: 
  Country: None (occurrence: None)
  Receive Date: 20050811
  Receipt Date: 20050726
  Transmission Date: 20060218
  Serious: Yes (Other)
  Sender: FDA-Public Use
  Company Number: 197359

PATIENT
  Age: 50 Year
  Sex: Female
  Weight: 70.3075 kg

DRUGS (6)
  1. AVONEX [Suspect]
     Indication: MULTIPLE SCLEROSIS
     Dosage: 30 UG; QW; IM
     Route: 030
     Dates: start: 20020501, end: 20030801
  2. AVONEX [Suspect]
     Indication: MULTIPLE SCLEROSIS
     Dosage: 30 UG; QW; IM
     Route: 030
     Dates: start: 20030801
  3. PRENISONE [Concomitant]
  4. NEURONTIN [Concomitant]
  5. DIAZEPAM [Concomitant]
  6. PROZAC [Concomitant]

REACTIONS (9)
  - ALOPECIA [None]
  - ARTHROPATHY [None]
  - ASEPTIC NECROSIS BONE [None]
  - FALL [None]
  - JOINT STIFFNESS [None]
  - MUSCULOSKELETAL STIFFNESS [None]
  - NECROSIS [None]
  - NERVOUSNESS [None]
  - STRESS [None]
